FAERS Safety Report 6093424-0 (Version None)
Quarter: 2009Q1

REPORT INFORMATION
  Report Type: 
  Country: None (occurrence: None)
  Receive Date: 20090226
  Receipt Date: 20090217
  Transmission Date: 20090719
  Serious: Yes (Hospitalization)
  Sender: FDA-Public Use
  Company Number: US-BIOGENIDEC-2008BI032883

PATIENT
  Age: 60 Year
  Sex: Female

DRUGS (10)
  1. TYSABRI [Suspect]
     Indication: MULTIPLE SCLEROSIS
     Route: 042
     Dates: start: 20080804
  2. LISINOPRIL [Concomitant]
     Indication: HYPERTENSION
  3. DETROL LA [Concomitant]
     Indication: HYPERTONIC BLADDER
     Route: 048
  4. FOLIC ACID [Concomitant]
     Indication: DRUG USE FOR UNKNOWN INDICATION
     Route: 048
  5. CALTRATE [Concomitant]
     Indication: DRUG USE FOR UNKNOWN INDICATION
  6. VITAMIN D [Concomitant]
     Indication: DRUG USE FOR UNKNOWN INDICATION
  7. SENOKOT [Concomitant]
     Indication: DRUG USE FOR UNKNOWN INDICATION
     Route: 048
  8. ASPIRIN [Concomitant]
     Indication: DRUG USE FOR UNKNOWN INDICATION
  9. BACLOFEN [Concomitant]
     Indication: DRUG USE FOR UNKNOWN INDICATION
  10. HORMONE REPLACEMENT THERAPY [Concomitant]
     Indication: DRUG USE FOR UNKNOWN INDICATION

REACTIONS (6)
  - ABDOMINAL ADHESIONS [None]
  - BILIARY DYSKINESIA [None]
  - CHOLECYSTITIS CHRONIC [None]
  - DIVERTICULUM INTESTINAL [None]
  - HYDRONEPHROSIS [None]
  - RENAL CYST [None]
